FAERS Safety Report 6589314-7 (Version None)
Quarter: 2010Q1

REPORT INFORMATION
  Report Type: 
  Country: None (occurrence: None)
  Receive Date: 20100205
  Receipt Date: 20100122
  Transmission Date: 20100710
  Serious: Yes (Death)
  Sender: FDA-Public Use
  Company Number: 003308

PATIENT
  Age: 84 Year
  Sex: Male

DRUGS (6)
  1. MACUGEN [Suspect]
     Indication: CHOROIDAL NEOVASCULARISATION
     Dosage: 0.3 MG, INTRAOCULAR
     Route: 031
     Dates: start: 20090106, end: 20090424
  2. MACUGEN [Suspect]
     Indication: MACULAR DEGENERATION
     Dosage: 0.3 MG, INTRAOCULAR
     Route: 031
     Dates: start: 20090106, end: 20090424
  3. MYDRIN P (PHENYLEPHRINE HYDROCHLORIDE, TROPICAMIDE) [Concomitant]
  4. MOXIFLOXACIN HCL [Concomitant]
  5. XYLOCAINE [Concomitant]
  6. ISODINE (POVIDONE-IODINE) [Concomitant]

REACTIONS (1)
  - ELDERLY [None]
